FAERS Safety Report 9617305 (Version 5)
Quarter: 2013Q4

REPORT INFORMATION
  Report Type: Report from Study
  Country: BR (occurrence: BR)
  Receive Date: 20131011
  Receipt Date: 20131206
  Transmission Date: 20140711
  Serious: Yes (Hospitalization, Other)
  Sender: FDA-Public Use
  Company Number: BR-ABBVIE-13P-020-1155056-00

PATIENT
  Age: 56 Year
  Sex: Female
  Weight: 70 kg

DRUGS (5)
  1. HUMIRA [Suspect]
     Indication: RHEUMATOID ARTHRITIS
     Route: 058
  2. VITAMIN D [Concomitant]
     Indication: BONE DISORDER
     Route: 048
     Dates: start: 201307
  3. OMEPRAZOLE [Concomitant]
     Indication: GASTRITIS
  4. ARTROLIVE [Concomitant]
     Indication: ARTHROPATHY
  5. TECNOMET [Concomitant]
     Indication: ARTHROPATHY

REACTIONS (6)
  - Hepatic steatosis [Recovered/Resolved]
  - Arthralgia [Unknown]
  - Pain [Recovered/Resolved]
  - Dysgeusia [Unknown]
  - Cholelithiasis [Recovered/Resolved]
  - Hepatic steatosis [Not Recovered/Not Resolved]
